FAERS Safety Report 23837526 (Version 3)
Quarter: 2024Q3

REPORT INFORMATION
  Report Type: Report from Study
  Country: US (occurrence: US)
  Receive Date: 20240509
  Receipt Date: 20240807
  Transmission Date: 20241016
  Serious: Yes (Hospitalization)
  Sender: NOVARTIS
  Company Number: US-002147023-NVSC2024US096962

PATIENT
  Sex: Female

DRUGS (2)
  1. MEKINIST [Suspect]
     Active Substance: TRAMETINIB DIMETHYL SULFOXIDE
     Indication: Neoplasm malignant
     Dosage: 1 DOSAGE FORM, QD
     Route: 048
     Dates: start: 20240619
  2. TAFINLAR [Suspect]
     Active Substance: DABRAFENIB MESYLATE
     Indication: Neoplasm malignant
     Dosage: 2 DOSAGE FORM, BID
     Route: 048
     Dates: start: 20240619

REACTIONS (6)
  - Illness [Unknown]
  - Peripheral swelling [Unknown]
  - Cheilitis [Unknown]
  - Lip exfoliation [Unknown]
  - Constipation [Unknown]
  - Ill-defined disorder [Unknown]
